FAERS Safety Report 15891641 (Version 2)
Quarter: 2019Q1

REPORT INFORMATION
  Report Type: Spontaneous
  Country: US (occurrence: US)
  Receive Date: 20190130
  Receipt Date: 20190205
  Transmission Date: 20190417
  Serious: Yes (Other)
  Sender: FDA-Public Use
  Company Number: PHEH2019US003594

PATIENT
  Sex: Female

DRUGS (2)
  1. BABY ASPIRIN [Concomitant]
     Active Substance: ASPIRIN
     Indication: PRODUCT USED FOR UNKNOWN INDICATION
     Dosage: UNK
     Route: 065
  2. NADOLOL SANDOZ [Suspect]
     Active Substance: NADOLOL
     Indication: PRODUCT USED FOR UNKNOWN INDICATION
     Dosage: 20 MG, QD (ONCE DIALY)
     Route: 065

REACTIONS (8)
  - Blood pressure increased [Recovered/Resolved]
  - Insomnia [Unknown]
  - Dizziness [Unknown]
  - Pain in jaw [Unknown]
  - Product quality issue [Unknown]
  - Pruritus [Unknown]
  - Headache [Unknown]
  - Ear pain [Unknown]
